FAERS Safety Report 4611248-5 (Version None)
Quarter: 2005Q1

REPORT INFORMATION
  Report Type: 
  Country: None (occurrence: None)
  Receive Date: 20050315
  Receipt Date: 20050315
  Transmission Date: 20050727
  Serious: Yes (Death)
  Sender: FDA-Public Use
  Company Number: None

PATIENT
  Age: 85 Year
  Sex: Female
  Weight: 41.7309 kg

DRUGS (6)
  1. PROPULSID [Suspect]
     Indication: DYSKINESIA OESOPHAGEAL
     Dosage: 20 MG QID PO
     Route: 048
  2. CALAN [Concomitant]
  3. COLACE [Concomitant]
  4. LASIX [Concomitant]
  5. VASOTEC [Concomitant]
  6. PREMARIN [Concomitant]

REACTIONS (3)
  - PLEURAL EFFUSION [None]
  - PNEUMONIA [None]
  - RESPIRATORY ARREST [None]
